FAERS Safety Report 6690514-6 (Version None)
Quarter: 2010Q2

REPORT INFORMATION
  Report Type: 
  Country: None (occurrence: None)
  Receive Date: 20100421
  Receipt Date: 20100415
  Transmission Date: 20101027
  Serious: Yes (Hospitalization)
  Sender: FDA-Public Use
  Company Number: JP-MERCK-1004USA03021

PATIENT
  Age: 30 Year
  Sex: Male

DRUGS (3)
  1. ISENTRESS [Suspect]
     Route: 048
     Dates: start: 20090101
  2. TRUVADA [Concomitant]
     Route: 048
  3. FERROMIA [Concomitant]
     Route: 048

REACTIONS (2)
  - HYPOAESTHESIA [None]
  - LYMPHOMA [None]
